FAERS Safety Report 10436409 (Version 1)
Quarter: 2014Q3

REPORT INFORMATION
  Report Type: Spontaneous
  Country: US (occurrence: None)
  Receive Date: 20140904
  Receipt Date: 20140904
  Transmission Date: 20150326
  Serious: Yes (Hospitalization)
  Sender: FDA-Public Use
  Company Number: NGX_02550_2014

PATIENT
  Age: 86 Year
  Sex: Female

DRUGS (1)
  1. QUETENZA [Suspect]
     Active Substance: CAPSAICIN
     Indication: POST HERPETIC NEURALGIA
     Dosage: CUTANOEUS PATCH SUB DERMAL
     Dates: start: 20140819, end: 20140819

REACTIONS (4)
  - Back pain [None]
  - Diarrhoea [None]
  - Hypotension [None]
  - Pain in extremity [None]

NARRATIVE: CASE EVENT DATE: 201408
